FAERS Safety Report 9112920 (Version 1)
Quarter: 2013Q1

REPORT INFORMATION
  Report Type: Spontaneous
  Country: CH (occurrence: CH)
  Receive Date: 20130211
  Receipt Date: 20130211
  Transmission Date: 20140127
  Serious: Yes (Other)
  Sender: FDA-Public Use
  Company Number: CH-ROCHE-1189512

PATIENT
  Age: 71 Year
  Sex: Male

DRUGS (3)
  1. MABTHERA [Suspect]
     Indication: B-CELL LYMPHOMA
     Route: 042
  2. MABTHERA [Suspect]
     Route: 042
     Dates: start: 2012
  3. MABTHERA [Suspect]
     Route: 042

REACTIONS (1)
  - Tooth loss [Unknown]
